FAERS Safety Report 4416001-3 (Version None)
Quarter: 2004Q3

REPORT INFORMATION
  Report Type: 
  Country: None (occurrence: None)
  Receive Date: 20040802
  Receipt Date: 20040722
  Transmission Date: 20050211
  Serious: Yes (Hospitalization)
  Sender: FDA-Public Use
  Company Number: 04H-083-0267795-00

PATIENT
  Age: 75 Year
  Sex: Female

DRUGS (6)
  1. VANCOMYCIN HYDROCHLORIDE [Suspect]
     Indication: SURGERY
     Dosage: 42 ML/H Q DAY, INTRAVENOUS
     Route: 042
     Dates: start: 20040720, end: 20040720
  2. PRIXAR [Concomitant]
  3. SIMVASTATIN [Concomitant]
  4. HEPARIN-FRACTION, CALCIUM SALT [Concomitant]
  5. OMEPRAZOLE [Concomitant]
  6. TRAMADOL HYDROCHLORIDE [Concomitant]

REACTIONS (7)
  - DRUG HYPERSENSITIVITY [None]
  - HYPERHIDROSIS [None]
  - HYPOTENSION [None]
  - MALAISE [None]
  - NAUSEA [None]
  - VERTIGO [None]
  - VOMITING [None]
